FAERS Safety Report 7573923-2 (Version None)
Quarter: 2011Q2

REPORT INFORMATION
  Report Type: 
  Country: None (occurrence: None)
  Receive Date: 20110627
  Receipt Date: 20110622
  Transmission Date: 20111010
  Serious: Yes (Other)
  Sender: FDA-Public Use
  Company Number: D0071709A

PATIENT
  Sex: Male

DRUGS (1)
  1. AVANDAMET [Suspect]
     Route: 048
     Dates: start: 20100927, end: 20101003

REACTIONS (2)
  - UPPER LIMB FRACTURE [None]
  - HEPATIC CIRRHOSIS [None]
